FAERS Safety Report 6787346-7 (Version None)
Quarter: 2010Q2

REPORT INFORMATION
  Report Type: 
  Country: None (occurrence: None)
  Receive Date: 20100623
  Receipt Date: 20060928
  Transmission Date: 20101027
  Serious: No
  Sender: FDA-Public Use
  Company Number: US-PFIZER INC-2007022259

PATIENT

DRUGS (3)
  1. CADUET [Suspect]
  2. NORVASC [Suspect]
  3. LIPITOR [Suspect]

REACTIONS (1)
  - BLOOD CHOLESTEROL INCREASED [None]
